FAERS Safety Report 5918471-8 (Version None)
Quarter: 2008Q4

REPORT INFORMATION
  Report Type: 
  Country: None (occurrence: None)
  Receive Date: 20081015
  Receipt Date: 20081003
  Transmission Date: 20090506
  Serious: Yes (Hospitalization, Other)
  Sender: FDA-Public Use
  Company Number: GB-JNJFOC-20080702748

PATIENT
  Sex: Male
  Weight: 96 kg

DRUGS (5)
  1. INFLIXIMAB [Suspect]
     Route: 042
  2. INFLIXIMAB [Suspect]
     Indication: PSORIATIC ARTHROPATHY
     Route: 042
  3. AZATHIOPRINE [Concomitant]
  4. DICLOFENAC [Concomitant]
  5. MESALAMINE [Concomitant]

REACTIONS (11)
  - ACUTE MYOCARDIAL INFARCTION [None]
  - BRADYCARDIA [None]
  - CARDIOMYOPATHY [None]
  - COAGULOPATHY [None]
  - CROHN'S DISEASE [None]
  - LARGE INTESTINE PERFORATION [None]
  - LEFT VENTRICULAR DYSFUNCTION [None]
  - PULMONARY OEDEMA [None]
  - SEPSIS [None]
  - VENTRICULAR TACHYCARDIA [None]
  - WOUND DEHISCENCE [None]
